FAERS Safety Report 8481050 (Version 4)
Quarter: 2013Q1

REPORT INFORMATION
  Report Type: Report from Study
  Country: US (occurrence: US)
  Receive Date: 20120328
  Receipt Date: 20130319
  Transmission Date: 20140127
  Serious: Yes (Other)
  Sender: FDA-Public Use
  Company Number: US-ROCHE-1050031

PATIENT
  Age: 53 Year
  Sex: Male
  Weight: 78 kg

DRUGS (2)
  1. VEMURAFENIB [Suspect]
     Indication: NEOPLASM
     Route: 048
     Dates: start: 20090504
  2. VEMURAFENIB [Suspect]
     Dosage: DOSE REPORTED FOR MOST RECENT CYCLE NO. 38
     Route: 048
     Dates: start: 20120216, end: 20120314

REACTIONS (1)
  - Colon adenoma [Recovered/Resolved]
